FAERS Safety Report 4862274-2 (Version None)
Quarter: 2005Q4

REPORT INFORMATION
  Report Type: 
  Country: None (occurrence: None)
  Receive Date: 20051201
  Receipt Date: 20050823
  Transmission Date: 20060501
  Serious: No
  Sender: FDA-Public Use
  Company Number: 2005PV001156

PATIENT
  Sex: Female

DRUGS (5)
  1. BYETTA [Suspect]
     Dosage: 5 MCG; BID; SC
     Route: 058
     Dates: start: 20050701
  2. LANTUS [Concomitant]
  3. RYTHMOL [Concomitant]
  4. GLUCOPHAGE [Concomitant]
  5. AMARYL [Concomitant]

REACTIONS (5)
  - CHEST DISCOMFORT [None]
  - EARLY SATIETY [None]
  - NON-CARDIAC CHEST PAIN [None]
  - PALPITATIONS [None]
  - WEIGHT DECREASED [None]
